FAERS Safety Report 19501085 (Version 1)
Quarter: 2021Q3

REPORT INFORMATION
  Report Type: Spontaneous
  Country: DE (occurrence: DE)
  Receive Date: 20210707
  Receipt Date: 20210707
  Transmission Date: 20211014
  Serious: Yes (Hospitalization, Other)
  Sender: FDA-Public Use
  Company Number: NVSC2021DE133593

PATIENT
  Age: 77 Year
  Sex: Female
  Weight: 67 kg

DRUGS (1)
  1. BEOVU [Suspect]
     Active Substance: BROLUCIZUMAB-DBLL
     Indication: NEOVASCULAR AGE-RELATED MACULAR DEGENERATION
     Dosage: UNK
     Route: 065
     Dates: end: 202006

REACTIONS (10)
  - Hyphaema [Unknown]
  - Retinal artery occlusion [Not Recovered/Not Resolved]
  - Retinal ischaemia [Unknown]
  - Retinal vasculitis [Not Recovered/Not Resolved]
  - Optic atrophy [Unknown]
  - Macular oedema [Unknown]
  - Iris neovascularisation [Unknown]
  - Retinal vascular occlusion [Not Recovered/Not Resolved]
  - Glaucoma [Not Recovered/Not Resolved]
  - Retinal vein occlusion [Unknown]

NARRATIVE: CASE EVENT DATE: 20201102
